FAERS Safety Report 8063055-1 (Version None)
Quarter: 2012Q1

REPORT INFORMATION
  Report Type: 
  Country: None (occurrence: None)
  Receive Date: 20120123
  Receipt Date: 20120110
  Transmission Date: 20120608
  Serious: Yes (Hospitalization)
  Sender: FDA-Public Use
  Company Number: CA-ROCHE-1031606

PATIENT
  Sex: Male

DRUGS (13)
  1. LIPITOR [Concomitant]
     Dates: start: 19900101
  2. METFORMIN HCL [Concomitant]
     Dates: start: 20000101
  3. PLAVIX [Concomitant]
     Dates: start: 19900101
  4. PROCAL [Concomitant]
     Dates: start: 20060101
  5. METOPROLOL TARTRATE [Concomitant]
     Dates: start: 19900101
  6. RAMIPRIL [Concomitant]
     Dates: start: 19900101
  7. ASPIRIN [Concomitant]
     Dates: start: 19900101
  8. RANIBIZUMAB [Suspect]
     Indication: DIABETIC RETINAL OEDEMA
     Route: 050
     Dates: start: 20111207
  9. FLOMAX [Concomitant]
     Dates: start: 20020101
  10. FUROSEMIDE [Concomitant]
     Dates: start: 19900101
  11. JANUVIA [Concomitant]
  12. GLUCOBAY [Concomitant]
     Dates: start: 20000101
  13. GLYBURIDE [Concomitant]
     Dates: start: 20000101

REACTIONS (1)
  - GASTROINTESTINAL DISORDER [None]
